FAERS Safety Report 21862534 (Version 1)
Quarter: 2023Q1

REPORT INFORMATION
  Report Type: Spontaneous
  Country: FR (occurrence: FR)
  Receive Date: 20230114
  Receipt Date: 20230114
  Transmission Date: 20230418
  Serious: Yes (Hospitalization)
  Sender: FDA-Public Use
  Company Number: None

PATIENT
  Age: 76 Year
  Sex: Male

DRUGS (3)
  1. KEYTRUDA [Suspect]
     Active Substance: PEMBROLIZUMAB
     Indication: Lung neoplasm malignant
     Dosage: UNK
     Route: 042
     Dates: start: 20221011, end: 20221031
  2. PACLITAXEL [Suspect]
     Active Substance: PACLITAXEL
     Indication: Lung neoplasm malignant
     Dosage: UNK
     Route: 042
     Dates: start: 20221011, end: 20221031
  3. CARBOPLATIN [Suspect]
     Active Substance: CARBOPLATIN
     Indication: Lung neoplasm malignant
     Dosage: UNK
     Route: 042
     Dates: start: 20221011, end: 20221031

REACTIONS (1)
  - Peripheral sensorimotor neuropathy [Not Recovered/Not Resolved]

NARRATIVE: CASE EVENT DATE: 20221101
